FAERS Safety Report 7100053-6 (Version None)
Quarter: 2010Q4

REPORT INFORMATION
  Report Type: 
  Country: None (occurrence: None)
  Receive Date: 20101112
  Receipt Date: 20101101
  Transmission Date: 20110411
  Serious: Yes (Hospitalization, Other)
  Sender: FDA-Public Use
  Company Number: US-ELI_LILLY_AND_COMPANY-US201011001553

PATIENT
  Age: 55 Year
  Sex: Female

DRUGS (2)
  1. EFFIENT [Suspect]
     Indication: THROMBOSIS IN DEVICE
     Dosage: 10 MG, DAILY (1/D)
     Route: 065
     Dates: start: 20100601
  2. ASPIRIN [Concomitant]
     Dosage: 325 MG, UNKNOWN
     Route: 065
     Dates: start: 20100601

REACTIONS (4)
  - ANGINA UNSTABLE [None]
  - ASTHENIA [None]
  - DIZZINESS [None]
  - SUBDURAL HAEMATOMA [None]
